FAERS Safety Report 7141557-X (Version None)
Quarter: 2010Q4

REPORT INFORMATION
  Report Type: 
  Country: None (occurrence: None)
  Receive Date: 20101119
  Receipt Date: 20100419
  Transmission Date: 20110411
  Serious: Yes (Hospitalization)
  Sender: FDA-Public Use
  Company Number: UTC-001024

PATIENT
  Age: 46 Year
  Sex: Male
  Weight: 91.4 kg

DRUGS (7)
  1. TYVASO [Suspect]
     Indication: PULMONARY ARTERIAL HYPERTENSION
     Dosage: 216 MCG (54 MCG, 4 IN 1 D), INHALATION
     Route: 055
     Dates: start: 20091005
  2. REVATIO [Concomitant]
  3. TRACLEER [Concomitant]
  4. COUMADIN [Concomitant]
  5. METOPROLOL SUCCINATE [Concomitant]
  6. NORVASC [Concomitant]
  7. LISINOPRIL [Concomitant]

REACTIONS (1)
  - PNEUMONIA [None]
